FAERS Safety Report 22064817 (Version 2)
Quarter: 2023Q1

REPORT INFORMATION
  Report Type: Report from Study
  Country: EG (occurrence: EG)
  Receive Date: 20230306
  Receipt Date: 20230314
  Transmission Date: 20230417
  Serious: Yes (Other)
  Sender: FDA-Public Use
  Company Number: EG-002147023-NVSC2023EG047380

PATIENT
  Age: 71 Year
  Sex: Male

DRUGS (5)
  1. ENTRESTO [Suspect]
     Active Substance: SACUBITRIL\VALSARTAN
     Indication: Cardiac failure
     Dosage: 50 MG, BID
     Route: 048
     Dates: start: 20230217
  2. INSULIN NOS [Concomitant]
     Active Substance: INSULIN NOS
     Indication: Diabetes mellitus
     Dosage: 15 IU, AFTER LUNCH
     Route: 065
     Dates: start: 20190101
  3. JANUMET [Concomitant]
     Active Substance: METFORMIN HYDROCHLORIDE\SITAGLIPTIN PHOSPHATE
     Indication: Diabetes mellitus
     Dosage: 1 DOSAGE FORM (1000 UNIT NOT REPORTED), QD, IN THE MORNING
     Route: 065
     Dates: start: 20190101
  4. INSULIN NOS [Concomitant]
     Active Substance: INSULIN NOS
     Indication: Diabetes mellitus
     Dosage: 25 IU, IN EVENING, PEN
     Route: 065
     Dates: start: 20190101
  5. PLAVIX [Concomitant]
     Active Substance: CLOPIDOGREL BISULFATE
     Indication: Hypotension
     Dosage: 4 DOSAGE FORM, ONCE/SINGLE
     Route: 048
     Dates: start: 20230221

REACTIONS (4)
  - Gait inability [Unknown]
  - Insomnia [Not Recovered/Not Resolved]
  - Dyspnoea [Unknown]
  - Movement disorder [Unknown]

NARRATIVE: CASE EVENT DATE: 20230217
